FAERS Safety Report 4337570-8 (Version None)
Quarter: 2004Q2

REPORT INFORMATION
  Report Type: 
  Country: None (occurrence: None)
  Receive Date: 20040413
  Receipt Date: 20030702
  Transmission Date: 20050107
  Serious: No
  Sender: FDA-Public Use
  Company Number: US-GLAXOSMITHKLINE-A0415233A

PATIENT
  Age: 54 Year
  Sex: Male

DRUGS (15)
  1. AGENERASE [Suspect]
     Indication: HIV INFECTION
     Dosage: 150MG UNKNOWN
     Route: 048
     Dates: start: 20030605
  2. NORVIR [Concomitant]
  3. COMBIVIR [Concomitant]
     Route: 048
  4. VIREAD [Concomitant]
  5. DIFLUCAN [Concomitant]
  6. BACTRIM DS [Concomitant]
  7. PROZAC [Concomitant]
  8. WELLBUTRIN [Concomitant]
  9. LAMICTAL [Concomitant]
  10. PREVACID [Concomitant]
  11. ULTRABROM [Concomitant]
  12. TRAZODONE HCL [Concomitant]
  13. SEROQUEL [Concomitant]
  14. ANDROGEL [Concomitant]
  15. FLOMAX [Concomitant]

REACTIONS (1)
  - DEPRESSION [None]
